FAERS Safety Report 6523390-2 (Version None)
Quarter: 2009Q4

REPORT INFORMATION
  Report Type: 
  Country: None (occurrence: None)
  Receive Date: 20091231
  Receipt Date: 20091222
  Transmission Date: 20100525
  Serious: Yes (Hospitalization)
  Sender: FDA-Public Use
  Company Number: AT-ROCHE-676233

PATIENT
  Sex: Female
  Weight: 67 kg

DRUGS (2)
  1. PEG-INTERFERON ALFA 2A (RO 25-8310) [Suspect]
     Dosage: LAST DOSE PRIOR TO SAE: 15 DEC 2009, FORM AS PER PROTOCOL.
     Route: 058
     Dates: end: 20091215
  2. RIBAVIRIN [Suspect]
     Dosage: LAST DOSE PRIOR TO SAE 15 DEC 2009, FORM AS PER PROTOCOL.
     Route: 048

REACTIONS (2)
  - CONJUNCTIVITIS VIRAL [None]
  - PROTHROMBIN TIME PROLONGED [None]
